FAERS Safety Report 6855066-6 (Version None)
Quarter: 2010Q3

REPORT INFORMATION
  Report Type: 
  Country: None (occurrence: None)
  Receive Date: 20100717
  Receipt Date: 20081125
  Transmission Date: 20110219
  Serious: Yes (Other)
  Sender: FDA-Public Use
  Company Number: US-PFIZER INC-2008001920

PATIENT
  Age: 59 Year
  Sex: Female

DRUGS (4)
  1. CHAMPIX [Suspect]
     Dosage: 1 MG, 2X/DAY
     Route: 048
     Dates: start: 20070525
  2. NICOTINE [Suspect]
  3. CATAPRES [Suspect]
     Dosage: UNK
     Route: 048
     Dates: start: 20070525
  4. LEVOTHYROXINE SODIUM [Concomitant]
     Dosage: UNK
     Route: 048

REACTIONS (2)
  - NIGHTMARE [None]
  - SLEEP DISORDER [None]
